FAERS Safety Report 21234352 (Version 1)
Quarter: 2022Q3

REPORT INFORMATION
  Report Type: Other
  Country: None (occurrence: TR)
  Receive Date: 20220819
  Receipt Date: 20220819
  Transmission Date: 20221027
  Serious: Yes (Other)
  Sender: FDA-Public Use
  Company Number: TR-B.Braun Medical Inc.-2132079

PATIENT
  Age: 30 Year
  Sex: Female

DRUGS (1)
  1. BUPIVACAINE HYDROCHLORIDE WITH DEXTROSE [Suspect]
     Active Substance: BUPIVACAINE HYDROCHLORIDE

REACTIONS (5)
  - Off label use [Unknown]
  - Drug ineffective [Unknown]
  - Exposure during pregnancy [Unknown]
  - Tachycardia [Unknown]
  - Hypertension [Unknown]
